FAERS Safety Report 8554396-X (Version None)
Quarter: 2012Q3

REPORT INFORMATION
  Report Type: 
  Country: None (occurrence: None)
  Receive Date: 20120731
  Receipt Date: 20120723
  Transmission Date: 20120928
  Serious: Yes (Disabling)
  Sender: FDA-Public Use
  Company Number: US-009507513-1207USA009690

PATIENT

DRUGS (8)
  1. CALCICHEW D3 [Concomitant]
  2. LANSOPRAZOLE [Concomitant]
  3. BISOPROLOL FUMARATE [Concomitant]
  4. ACETAMINOPHEN [Concomitant]
  5. SERTRALINE HYDROCHLORIDE [Concomitant]
  6. ASPIRIN [Concomitant]
  7. LETROZOLE [Suspect]
     Dosage: 2.5 MG, UNK
     Route: 048
  8. ZOCOR [Suspect]
     Dosage: 20 MG, QD
     Route: 048

REACTIONS (4)
  - BLOOD CREATINE PHOSPHOKINASE INCREASED [None]
  - ARTHRALGIA [None]
  - MOBILITY DECREASED [None]
  - MYALGIA [None]
